FAERS Safety Report 6551032-9 (Version None)
Quarter: 2010Q1

REPORT INFORMATION
  Report Type: 
  Country: None (occurrence: None)
  Receive Date: 20100125
  Receipt Date: 20100115
  Transmission Date: 20100710
  Serious: Yes (Other)
  Sender: FDA-Public Use
  Company Number: US-TYCO HEALTHCARE/MALLINCKRODT-T201000090

PATIENT
  Age: 73 Year
  Sex: Female

DRUGS (4)
  1. PAMELOR [Suspect]
     Dosage: UNK
  2. CHLORPROMAZINE [Suspect]
     Dosage: UNK
  3. AMITRIPTYLINE HCL [Suspect]
     Dosage: UNK
  4. DIURETICS [Concomitant]
     Dosage: UNK

REACTIONS (2)
  - BUNDLE BRANCH BLOCK LEFT [None]
  - VENTRICULAR FIBRILLATION [None]
